FAERS Safety Report 14699821 (Version 1)
Quarter: 2018Q1

REPORT INFORMATION
  Report Type: Spontaneous
  Country: PT (occurrence: PT)
  Receive Date: 20180330
  Receipt Date: 20180330
  Transmission Date: 20180509
  Serious: Yes (Hospitalization)
  Sender: FDA-Public Use
  Company Number: PT-TEVA-2018-PT-874467

PATIENT
  Age: 60 Year
  Sex: Male

DRUGS (3)
  1. FLUOROURACIL. [Suspect]
     Active Substance: FLUOROURACIL
     Indication: PANCREATIC CARCINOMA METASTATIC
     Dosage: FOLFOX CHEMOTHERAPY REGIMEN
     Route: 065
  2. OXALIPLATIN. [Suspect]
     Active Substance: OXALIPLATIN
     Indication: PANCREATIC CARCINOMA METASTATIC
     Dosage: FOLFOX CHEMOTHERAPY REGIMEN
     Route: 065
  3. FOLINIC ACID [Suspect]
     Active Substance: LEUCOVORIN
     Indication: PANCREATIC CARCINOMA METASTATIC
     Dosage: FOLFOX CHEMOTHERAPY REGIMEN
     Route: 065

REACTIONS (5)
  - Large intestine perforation [Recovering/Resolving]
  - Acute kidney injury [Unknown]
  - Pneumoperitoneum [Recovering/Resolving]
  - Peritonitis [Recovering/Resolving]
  - Hypotension [Unknown]
